FAERS Safety Report 13991753 (Version 1)
Quarter: 2017Q3

REPORT INFORMATION
  Report Type: Spontaneous
  Country: US (occurrence: US)
  Receive Date: 20170920
  Receipt Date: 20170920
  Transmission Date: 20171128
  Serious: No
  Sender: FDA-Public Use
  Company Number: US-RECKITT BENCKISER HEALTHCARE INT LIMITED-RB-89879-2016

PATIENT
  Sex: Female

DRUGS (1)
  1. MUCINEX [Suspect]
     Active Substance: GUAIFENESIN
     Indication: PRODUCT USED FOR UNKNOWN INDICATION
     Dosage: 1800 MG, SINGLE
     Route: 065
     Dates: start: 20160811

REACTIONS (2)
  - No adverse event [Unknown]
  - Accidental overdose [Unknown]

NARRATIVE: CASE EVENT DATE: 20160811
